FAERS Safety Report 20438371 (Version 6)
Quarter: 2024Q1

REPORT INFORMATION
  Report Type: Spontaneous
  Country: US (occurrence: US)
  Receive Date: 20220207
  Receipt Date: 20240314
  Transmission Date: 20240410
  Serious: No
  Sender: FDA-Public Use
  Company Number: US-PFIZER INC-202101539350

PATIENT
  Age: 67 Year
  Sex: Female

DRUGS (2)
  1. IBRANCE [Suspect]
     Active Substance: PALBOCICLIB
     Indication: Breast cancer female
     Dosage: TAKE 1 TABLET BY MOUTH FOR 21 DAYS FOLLOWED BY 7DAYS OFF. EVERY CYCLE= 28DAYS. SWALLOW WHOLE
     Route: 048
  2. IBRANCE [Suspect]
     Active Substance: PALBOCICLIB
     Indication: Breast cancer female
     Dosage: 100 MG

REACTIONS (4)
  - Alopecia [Unknown]
  - Therapeutic response unexpected [Unknown]
  - Tumour marker increased [Unknown]
  - Product dose omission issue [Unknown]
